FAERS Safety Report 7274491-5 (Version None)
Quarter: 2011Q1

REPORT INFORMATION
  Report Type: 
  Country: None (occurrence: None)
  Receive Date: 20110204
  Receipt Date: 20110125
  Transmission Date: 20110831
  Serious: Yes (Hospitalization)
  Sender: FDA-Public Use
  Company Number: DE-ABBOTT-11P-062-0702019-00

PATIENT
  Sex: Male

DRUGS (4)
  1. AZATHIOPRIN [Concomitant]
     Indication: CROHN'S DISEASE
  2. HUMIRA [Suspect]
     Indication: CROHN'S DISEASE
  3. LOPERAMIDE [Suspect]
     Indication: CROHN'S DISEASE
     Dates: start: 20101228, end: 20110102
  4. PREDNISOLONE [Concomitant]
     Indication: CROHN'S DISEASE

REACTIONS (2)
  - SUBILEUS [None]
  - OVERDOSE [None]
